FAERS Safety Report 5568569-1 (Version None)
Quarter: 2007Q4

REPORT INFORMATION
  Report Type: 
  Country: None (occurrence: None)
  Receive Date: 20071130
  Receipt Date: 20061128
  Transmission Date: 20080405
  Serious: Yes (Other)
  Sender: FDA-Public Use
  Company Number: WAES 0606USA05284

PATIENT
  Age: 55 Year
  Sex: Female
  Weight: 65.7716 kg

DRUGS (4)
  1. FOSAMAX [Suspect]
     Indication: OSTEOPOROSIS
     Dosage: 5 MG DAILY PO; 35 MG WKY PO
     Route: 048
     Dates: start: 19991219, end: 20001001
  2. FOSAMAX [Suspect]
     Indication: OSTEOPOROSIS
     Dosage: 5 MG DAILY PO; 35 MG WKY PO
     Route: 048
     Dates: start: 20011212, end: 20051221
  3. PREMPRO [Concomitant]
  4. CALCIUM UNSPECIFIED [Concomitant]

REACTIONS (12)
  - ABSCESS ORAL [None]
  - DIVERTICULUM [None]
  - DYSPLASTIC NAEVUS SYNDROME [None]
  - HAEMORRHOIDS [None]
  - NAUSEA [None]
  - ORAL MUCOSAL BLISTERING [None]
  - OSTEOARTHRITIS [None]
  - OSTEONECROSIS [None]
  - PARAESTHESIA ORAL [None]
  - POST-TRAUMATIC HEADACHE [None]
  - ROAD TRAFFIC ACCIDENT [None]
  - TENOSYNOVITIS STENOSANS [None]
